FAERS Safety Report 16598257 (Version 1)
Quarter: 2019Q3

REPORT INFORMATION
  Report Type: Spontaneous
  Country: GB (occurrence: GB)
  Receive Date: 20190719
  Receipt Date: 20190719
  Transmission Date: 20191004
  Serious: Yes (Hospitalization, Disabling, Other)
  Sender: FDA-Public Use
  Company Number: GB-MYLANLABS-2019M1067355

PATIENT

DRUGS (2)
  1. ALENDRONATE [Suspect]
     Active Substance: ALENDRONATE SODIUM
     Indication: OSTEOPOROSIS
     Dosage: UNK
     Route: 048
  2. IBANDRONATE [Suspect]
     Active Substance: IBANDRONATE SODIUM
     Indication: OSTEOPOROSIS
     Dosage: UNK
     Route: 065

REACTIONS (2)
  - Fall [Recovering/Resolving]
  - Femur fracture [Recovering/Resolving]

NARRATIVE: CASE EVENT DATE: 20180602
